FAERS Safety Report 9338627 (Version 5)
Quarter: 2013Q3

REPORT INFORMATION
  Report Type: Report from Study
  Country: CA (occurrence: CA)
  Receive Date: 20130610
  Receipt Date: 20130910
  Transmission Date: 20140515
  Serious: Yes (Other)
  Sender: FDA-Public Use
  Company Number: PHHY2012CA025127

PATIENT
  Age: 66 Year
  Sex: Female

DRUGS (7)
  1. SANDOSTATIN LAR [Suspect]
     Indication: ACROMEGALY
     Dosage: 30 MG, EVERY 4 WEEKS
     Route: 030
     Dates: start: 20090623
  2. SANDOSTATIN LAR [Suspect]
     Dosage: 30 MG, EVERY 4 WEEKS
     Route: 030
  3. SANDOSTATIN LAR [Suspect]
     Dosage: 30 MG, EVERY 28 DAYS
     Route: 030
     Dates: end: 20130703
  4. TRIAMTERENE [Concomitant]
  5. HYDROCHLOROTHIAZIDE [Concomitant]
  6. RALOXIFENE [Concomitant]
  7. CLONAZEPAM [Concomitant]

REACTIONS (17)
  - Hepatic neoplasm [Not Recovered/Not Resolved]
  - Gastrointestinal disorder [Not Recovered/Not Resolved]
  - Rash generalised [Not Recovered/Not Resolved]
  - Asthenia [Not Recovered/Not Resolved]
  - Underdose [Unknown]
  - Injection site mass [Not Recovered/Not Resolved]
  - Feeling cold [Not Recovered/Not Resolved]
  - Eructation [Not Recovered/Not Resolved]
  - Injection site reaction [Unknown]
  - Hyperhidrosis [Not Recovered/Not Resolved]
  - Fatigue [Not Recovered/Not Resolved]
  - Blood growth hormone increased [Not Recovered/Not Resolved]
  - Syringe issue [Unknown]
  - Abdominal pain [Not Recovered/Not Resolved]
  - Constipation [Not Recovered/Not Resolved]
  - Flatulence [Not Recovered/Not Resolved]
  - Rash pruritic [Not Recovered/Not Resolved]
